FAERS Safety Report 5676117-0 (Version None)
Quarter: 2008Q1

REPORT INFORMATION
  Report Type: 
  Country: None (occurrence: None)
  Receive Date: 20080321
  Receipt Date: 20080314
  Transmission Date: 20080703
  Serious: Yes (Death, Hospitalization, Other)
  Sender: FDA-Public Use
  Company Number: PL-ROCHE-547427

PATIENT
  Age: 28 Year
  Sex: Male
  Weight: 96 kg

DRUGS (6)
  1. CYMEVENE [Suspect]
     Dosage: DURATION 10-14 DAYS
     Route: 065
     Dates: start: 20070801, end: 20070801
  2. VALCYTE [Suspect]
     Dosage: OTHER INDICATION PREVENTION AFTER CARDIAC GRAFT. DOSAGE REGIMEN 2X450 MG
     Route: 048
     Dates: start: 20070801, end: 20071101
  3. CELLCEPT [Suspect]
     Indication: PROPHYLAXIS AGAINST TRANSPLANT REJECTION
     Route: 065
     Dates: start: 20040101, end: 20071221
  4. CYCLOSPORINE [Concomitant]
  5. PROGRAFT [Concomitant]
  6. ENCORTON [Concomitant]

REACTIONS (7)
  - ANGIOPATHY [None]
  - ATRIAL FIBRILLATION [None]
  - CARDIAC DISORDER [None]
  - GRAFT DYSFUNCTION [None]
  - ILL-DEFINED DISORDER [None]
  - TRANSPLANT REJECTION [None]
  - VENTRICULAR FIBRILLATION [None]
